FAERS Safety Report 22074037 (Version 1)
Quarter: 2023Q1

REPORT INFORMATION
  Report Type: Spontaneous
  Country: US (occurrence: None)
  Receive Date: 20230307
  Receipt Date: 20230307
  Transmission Date: 20230417
  Serious: Yes (Disabling, Other)
  Sender: FDA-Public Use
  Company Number: None

PATIENT
  Age: 43 Year
  Sex: Male
  Weight: 81 kg

DRUGS (1)
  1. AMPHETAMINE\DEXTROAMPHETAMINE [Suspect]
     Active Substance: AMPHETAMINE\DEXTROAMPHETAMINE
     Indication: Attention deficit hyperactivity disorder
     Dosage: OTHER QUANTITY : 2 TABLET(S);?
     Route: 048
     Dates: start: 20230207, end: 20230306

REACTIONS (9)
  - Product substitution issue [None]
  - Drug ineffective [None]
  - Dizziness [None]
  - Nausea [None]
  - Anhedonia [None]
  - Somnolence [None]
  - Irritability [None]
  - Oesophageal spasm [None]
  - Product availability issue [None]

NARRATIVE: CASE EVENT DATE: 20230207
